FAERS Safety Report 5282250-8 (Version None)
Quarter: 2007Q2

REPORT INFORMATION
  Report Type: 
  Country: None (occurrence: None)
  Receive Date: 20070330
  Receipt Date: 20070319
  Transmission Date: 20071010
  Serious: Yes (Hospitalization)
  Sender: FDA-Public Use
  Company Number: FR-PFIZER INC-2007022522

PATIENT
  Sex: Female
  Weight: 57 kg

DRUGS (10)
  1. TRIFLUCAN [Suspect]
     Indication: CANDIDIASIS
     Route: 042
  2. GRANOCYTE [Suspect]
     Dosage: TEXT:1 DF-FREQ:INTERVAL: EVERY DAY
     Route: 058
     Dates: start: 20070118, end: 20070130
  3. CANCIDAS [Suspect]
     Indication: CANDIDIASIS
     Route: 042
     Dates: start: 20070201, end: 20070209
  4. VORICONAZOLE [Concomitant]
  5. LEVOTHYROXINE SODIUM [Concomitant]
  6. LARGACTIL [Concomitant]
  7. CERNEVIT-12 [Concomitant]
  8. ACETAMINOPHEN [Concomitant]
  9. PLITICAN [Concomitant]
  10. ANCOTIL [Concomitant]

REACTIONS (2)
  - C-REACTIVE PROTEIN INCREASED [None]
  - PYREXIA [None]
